FAERS Safety Report 20753144 (Version 2)
Quarter: 2023Q2

REPORT INFORMATION
  Report Type: Spontaneous
  Country: US (occurrence: None)
  Receive Date: 20220426
  Receipt Date: 20230420
  Transmission Date: 20230721
  Serious: No
  Sender: FDA-Public Use
  Company Number: US-ROCHE-3021515

PATIENT
  Sex: Female
  Weight: 70.370 kg

DRUGS (8)
  1. ESBRIET [Suspect]
     Active Substance: PIRFENIDONE
     Indication: Idiopathic pulmonary fibrosis
     Dosage: TAKE 1 TABLET 267MG BY MOUTH 3 TIMES A DAY FOR 7 DAYS.
     Route: 048
     Dates: start: 20220111
  2. ESBRIET [Suspect]
     Active Substance: PIRFENIDONE
     Dosage: THEN TAKE 2 TABLETS 534MG BY MOUTH 3 TIMES A DAY FOR 7 DAYS
     Route: 048
  3. ESBRIET [Suspect]
     Active Substance: PIRFENIDONE
     Dosage: THEN TAKE 3 TABLETS 801 MG 3 TIMES A DAY THEREAFTER
     Route: 048
  4. ESBRIET [Suspect]
     Active Substance: PIRFENIDONE
     Route: 048
     Dates: start: 20211213
  5. ESBRIET [Suspect]
     Active Substance: PIRFENIDONE
     Route: 048
     Dates: start: 20211228
  6. ESBRIET [Suspect]
     Active Substance: PIRFENIDONE
     Route: 048
     Dates: start: 20211231
  7. ESBRIET [Suspect]
     Active Substance: PIRFENIDONE
     Dosage: 6 TABLETS TOTAL PER DAY; TAKES 2 TABLETS IN MORNING, 2 TABLETS AT NOON, AND 2 TABLETS AT NIGHT
     Route: 048
     Dates: start: 202201
  8. ESBRIET [Suspect]
     Active Substance: PIRFENIDONE
     Indication: Idiopathic pulmonary fibrosis
     Dosage: TAKING 9 CAPSULES
     Route: 048

REACTIONS (5)
  - Nausea [Unknown]
  - Cough [Not Recovered/Not Resolved]
  - Vomiting [Unknown]
  - Diarrhoea [Unknown]
  - Abdominal pain upper [Unknown]
